FAERS Safety Report 8620737-8 (Version None)
Quarter: 2012Q3

REPORT INFORMATION
  Report Type: 
  Country: None (occurrence: None)
  Receive Date: 20120824
  Receipt Date: 20120817
  Transmission Date: 20120928
  Serious: Yes (Hospitalization)
  Sender: FDA-Public Use
  Company Number: US-US-EMD SERONO, INC.-7153743

PATIENT
  Sex: Male

DRUGS (3)
  1. PERCOCET [Concomitant]
     Indication: NECK PAIN
  2. REBIF [Suspect]
     Indication: MULTIPLE SCLEROSIS
     Route: 058
     Dates: start: 20120101
  3. PERCOCET [Concomitant]
     Indication: BACK PAIN

REACTIONS (1)
  - INCISION SITE COMPLICATION [None]
